FAERS Safety Report 4702985-2 (Version None)
Quarter: 2005Q2

REPORT INFORMATION
  Report Type: 
  Country: None (occurrence: None)
  Receive Date: 20050627
  Receipt Date: 20050616
  Transmission Date: 20051028
  Serious: No
  Sender: FDA-Public Use
  Company Number: B0384972A

PATIENT
  Age: 58 Year
  Sex: Male

DRUGS (4)
  1. RETROVIR [Suspect]
     Indication: HIV INFECTION
     Dosage: ORAL
     Route: 048
  2. INDINAVIR SULFATE [Suspect]
     Indication: HIV INFECTION
     Dosage: ORAL
     Route: 048
  3. LAMIVUDINE [Concomitant]
  4. NELFINAVIR MESYLATE [Concomitant]

REACTIONS (4)
  - BLOOD CREATININE DECREASED [None]
  - BLOOD PRESSURE ABNORMAL [None]
  - HAEMODIALYSIS [None]
  - RENAL IMPAIRMENT [None]
